FAERS Safety Report 25858971 (Version 1)
Quarter: 2025Q3

REPORT INFORMATION
  Report Type: Other
  Country: US (occurrence: US)
  Receive Date: 20250929
  Receipt Date: 20250929
  Transmission Date: 20251020
  Serious: Yes (Hospitalization)
  Sender: CHEMI SPA
  Company Number: US-CHEMI SPA-2185509

PATIENT
  Age: 22 Year
  Sex: Male

DRUGS (1)
  1. TEMOZOLOMIDE [Suspect]
     Active Substance: TEMOZOLOMIDE
     Indication: Glioma

REACTIONS (1)
  - Diabetes insipidus [Recovered/Resolved]
